FAERS Safety Report 22624622 (Version 2)
Quarter: 2023Q2

REPORT INFORMATION
  Report Type: Spontaneous
  Country: US (occurrence: US)
  Receive Date: 20230621
  Receipt Date: 20230626
  Transmission Date: 20230722
  Serious: No
  Sender: FDA-Public Use
  Company Number: US-ABBVIE-5298563

PATIENT
  Sex: Female

DRUGS (1)
  1. LINZESS [Suspect]
     Active Substance: LINACLOTIDE
     Indication: Product used for unknown indication
     Dosage: FORM STRENGTH: 290 MCG/?START DATE TEXT: ALMOST 2 YEARS
     Route: 048
     Dates: start: 2021

REACTIONS (2)
  - Abdominal distension [Recovered/Resolved]
  - Unevaluable event [Not Recovered/Not Resolved]
